FAERS Safety Report 8229763-4 (Version None)
Quarter: 2012Q1

REPORT INFORMATION
  Report Type: 
  Country: None (occurrence: None)
  Receive Date: 20120322
  Receipt Date: 20120315
  Transmission Date: 20120608
  Serious: Yes (Hospitalization)
  Sender: FDA-Public Use
  Company Number: CA-ROCHE-1009324

PATIENT
  Sex: Female

DRUGS (6)
  1. NEXIUM [Concomitant]
  2. VENTOLIN [Concomitant]
  3. SYMBICORT [Concomitant]
  4. SINGULAIR [Concomitant]
  5. XOLAIR [Suspect]
     Indication: ASTHMA
     Route: 058
     Dates: start: 20110414
  6. XOLAIR [Suspect]
     Indication: RHINITIS
     Route: 058
     Dates: start: 20110609

REACTIONS (4)
  - THERAPEUTIC RESPONSE DECREASED [None]
  - SINUSITIS [None]
  - LOWER RESPIRATORY TRACT INFECTION [None]
  - CHEST PAIN [None]
